FAERS Safety Report 5276244-6 (Version None)
Quarter: 2007Q1

REPORT INFORMATION
  Report Type: 
  Country: None (occurrence: None)
  Receive Date: 20070326
  Receipt Date: 20070313
  Transmission Date: 20070707
  Serious: Yes (Hospitalization)
  Sender: FDA-Public Use
  Company Number: DK-ELI_LILLY_AND_COMPANY-DK200703000323

PATIENT
  Age: 66 Year
  Sex: Male

DRUGS (4)
  1. DULOXETINE HYDROCHLORIDE [Suspect]
     Indication: DEPRESSION
     Dosage: 60 MG, DAILY (1/D)
     Route: 048
     Dates: start: 20060808, end: 20061115
  2. BERODUAL [Concomitant]
     Route: 055
  3. DIGOXIN [Concomitant]
     Dosage: 250 UG, DAILY (1/D)
  4. MAREVAN [Concomitant]
     Indication: ATRIAL FIBRILLATION

REACTIONS (3)
  - LEFT VENTRICULAR FAILURE [None]
  - PNEUMONIA [None]
  - POLLAKIURIA [None]
